FAERS Safety Report 5869895-9 (Version None)
Quarter: 2008Q3

REPORT INFORMATION
  Report Type: 
  Country: None (occurrence: None)
  Receive Date: 20080904
  Receipt Date: 20080825
  Transmission Date: 20090109
  Serious: Yes (Other)
  Sender: FDA-Public Use
  Company Number: PHEH2008US07536

PATIENT
  Sex: Female

DRUGS (1)
  1. LESCOL [Suspect]
     Dosage: UNK

REACTIONS (8)
  - ALOPECIA [None]
  - EOSINOPHIL COUNT DECREASED [None]
  - FATIGUE [None]
  - HEADACHE [None]
  - HYPERSENSITIVITY [None]
  - LIVER FUNCTION TEST ABNORMAL [None]
  - LYMPHADENOPATHY [None]
  - VISION BLURRED [None]
